FAERS Safety Report 16023232 (Version 1)
Quarter: 2019Q1

REPORT INFORMATION
  Report Type: Spontaneous
  Country: CN (occurrence: CN)
  Receive Date: 20190301
  Receipt Date: 20190301
  Transmission Date: 20190418
  Serious: Yes (Other)
  Sender: FDA-Public Use
  Company Number: CN-BAYER-2019-042946

PATIENT
  Age: 39 Year
  Sex: Female
  Weight: 60 kg

DRUGS (3)
  1. IOPROMIDE. [Suspect]
     Active Substance: IOPROMIDE
     Indication: CONTRAST MEDIA REACTION
  2. IOPROMIDE. [Suspect]
     Active Substance: IOPROMIDE
     Indication: COMPUTERISED TOMOGRAM ABDOMEN
  3. IOPROMIDE. [Suspect]
     Active Substance: IOPROMIDE
     Indication: DIAGNOSTIC PROCEDURE
     Dosage: 80 ML, ONCE
     Route: 042
     Dates: start: 20181204, end: 20181204

REACTIONS (5)
  - Chest discomfort [Recovered/Resolved]
  - Rash erythematous [Recovered/Resolved]
  - Dizziness [Recovered/Resolved]
  - Palpitations [Recovered/Resolved]
  - Pruritus [Recovered/Resolved]

NARRATIVE: CASE EVENT DATE: 20181204
